FAERS Safety Report 10658537 (Version 1)
Quarter: 2014Q4

REPORT INFORMATION
  Report Type: Spontaneous
  Country: US (occurrence: None)
  Receive Date: 20141205
  Receipt Date: 20141205
  Transmission Date: 20150529
  Serious: Yes (Other)
  Sender: FDA-Public Use
  Company Number: 163-POMAL-14092617

PATIENT
  Age: 62 Year
  Sex: Male
  Weight: 117 kg

DRUGS (1)
  1. POMALYST [Suspect]
     Active Substance: POMALIDOMIDE
     Indication: PLASMA CELL MYELOMA
     Dosage: 4MG, 1 IN 1D, PO
     Route: 048
     Dates: start: 201408

REACTIONS (2)
  - Herpes zoster [None]
  - Oropharyngeal pain [None]

NARRATIVE: CASE EVENT DATE: 20140905
